FAERS Safety Report 5341500-X (Version None)
Quarter: 2007Q2

REPORT INFORMATION
  Report Type: 
  Country: None (occurrence: None)
  Receive Date: 20070601
  Receipt Date: 20070524
  Transmission Date: 20071010
  Serious: Yes (Other)
  Sender: FDA-Public Use
  Company Number: PHEH2007US04739

PATIENT
  Age: 85 Year
  Sex: Female

DRUGS (4)
  1. ZOMETA [Suspect]
     Indication: METASTASES TO BONE
     Dates: start: 20021119, end: 20040120
  2. ZOMETA [Suspect]
     Dates: start: 20050222, end: 20050601
  3. AREDIA [Suspect]
     Dates: start: 20040413, end: 20041201
  4. FOSAMAX ONCE WEEKLY [Concomitant]
     Dosage: 70 G, QW
     Dates: start: 20040120, end: 20040120

REACTIONS (6)
  - BONE DEBRIDEMENT [None]
  - ERYTHEMA [None]
  - EXOSTOSIS [None]
  - IMPAIRED HEALING [None]
  - OSTEONECROSIS [None]
  - SWELLING [None]
